FAERS Safety Report 5293764-9 (Version None)
Quarter: 2007Q1

REPORT INFORMATION
  Report Type: 
  Country: None (occurrence: None)
  Receive Date: 20070116
  Receipt Date: 20051219
  Transmission Date: 20070707
  Serious: Yes (Other)
  Sender: FDA-Public Use
  Company Number: HQWYE465915JUN05

PATIENT
  Age: 54 Year
  Sex: Female

DRUGS (8)
  1. PREMPHASE (PREMARIN;CYCRIN 14/14) [Suspect]
     Indication: HORMONE REPLACEMENT THERAPY
  2. CYCRIN [Suspect]
  3. ESTRACE [Suspect]
  4. ESTRADERM [Suspect]
  5. ESTRATEST [Suspect]
  6. OGEN [Suspect]
  7. PREMARIN [Suspect]
  8. PROVERA [Suspect]

REACTIONS (1)
  - BREAST CANCER [None]
